FAERS Safety Report 11746239 (Version 2)
Quarter: 2015Q4

REPORT INFORMATION
  Report Type: Spontaneous
  Country: US (occurrence: US)
  Receive Date: 20151117
  Receipt Date: 20151119
  Transmission Date: 20160304
  Serious: Yes (Hospitalization)
  Sender: FDA-Public Use
  Company Number: US-HORIZON-ACT-0194-2015

PATIENT
  Age: 16 Year
  Sex: Male

DRUGS (1)
  1. ACTIMMUNE [Suspect]
     Active Substance: INTERFERON GAMMA-1B
     Indication: FRIEDREICH^S ATAXIA
     Dosage: 0.2 ML TWICE WEEKLY (UNKNOWN MCG)

REACTIONS (2)
  - Off label use [Unknown]
  - Spinal operation [Unknown]

NARRATIVE: CASE EVENT DATE: 201508
